FAERS Safety Report 12866248 (Version 2)
Quarter: 2016Q4

REPORT INFORMATION
  Report Type: Spontaneous
  Country: US (occurrence: US)
  Receive Date: 20161020
  Receipt Date: 20161107
  Transmission Date: 20170207
  Serious: Yes (Hospitalization)
  Sender: FDA-Public Use
  Company Number: US-MAYNE PHARMA INC.-2016MYN000711

PATIENT
  Sex: Female

DRUGS (11)
  1. CLOZAPINE. [Suspect]
     Active Substance: CLOZAPINE
     Indication: DELUSION
     Dosage: UNK
     Dates: start: 201511
  2. DEPAKOTE [Concomitant]
     Active Substance: DIVALPROEX SODIUM
  3. PEPCID                             /00305201/ [Concomitant]
     Active Substance: ALUMINUM HYDROXIDE\MAGNESIUM CARBONATE
  4. SYNTHROID [Concomitant]
     Active Substance: LEVOTHYROXINE SODIUM
  5. THORAZINE [Concomitant]
     Active Substance: CHLORPROMAZINE
  6. ATIVAN [Concomitant]
     Active Substance: LORAZEPAM
  7. CLOZAPINE. [Suspect]
     Active Substance: CLOZAPINE
     Indication: HALLUCINATION
     Dosage: 200 MG, QD
     Dates: start: 20161006
  8. FOLIC ACID. [Concomitant]
     Active Substance: FOLIC ACID
  9. ANAFRANIL [Concomitant]
     Active Substance: CLOMIPRAMINE HYDROCHLORIDE
  10. FAZACLO [Concomitant]
     Active Substance: CLOZAPINE
  11. HALDOL [Concomitant]
     Active Substance: HALOPERIDOL

REACTIONS (11)
  - Confusional state [Unknown]
  - Dyskinesia [Unknown]
  - Electroencephalogram abnormal [Unknown]
  - Osteoporosis [Unknown]
  - Fall [Unknown]
  - Treatment noncompliance [Unknown]
  - Metabolic syndrome [Unknown]
  - Hypersomnia [Unknown]
  - Generalised tonic-clonic seizure [Recovered/Resolved]
  - Stupor [Unknown]
  - Mental status changes [Unknown]
